FAERS Safety Report 4335931-4 (Version None)
Quarter: 2004Q2

REPORT INFORMATION
  Report Type: 
  Country: None (occurrence: None)
  Receive Date: 20040406
  Receipt Date: 20040323
  Transmission Date: 20050107
  Serious: Yes (Death)
  Sender: FDA-Public Use
  Company Number: IL-SHR-04-023230

PATIENT

DRUGS (2)
  1. FLUDARA [Suspect]
     Indication: BONE MARROW TRANSPLANT
  2. FLUDARA [Suspect]
     Indication: NEOPLASM MALIGNANT

REACTIONS (4)
  - BLOOD LACTATE DEHYDROGENASE INCREASED [None]
  - CEREBRAL DISORDER [None]
  - CONVULSION [None]
  - THROMBOTIC MICROANGIOPATHY [None]
